FAERS Safety Report 5719424-5 (Version None)
Quarter: 2008Q2

REPORT INFORMATION
  Report Type: 
  Country: None (occurrence: None)
  Receive Date: 20080421
  Receipt Date: 20070710
  Transmission Date: 20081010
  Serious: Yes (Other)
  Sender: FDA-Public Use
  Company Number: WAES 0707USA01515

PATIENT
  Age: 13 Year
  Sex: Male

DRUGS (1)
  1. SINGULAIR [Suspect]
     Indication: ASTHMA
     Dosage: 10 MG/HS/PO
     Route: 048
     Dates: start: 20051001

REACTIONS (3)
  - AGGRESSION [None]
  - AGITATION [None]
  - OVERDOSE [None]
